FAERS Safety Report 24059188 (Version 4)
Quarter: 2024Q3

REPORT INFORMATION
  Report Type: Spontaneous
  Country: US (occurrence: US)
  Receive Date: 20240708
  Receipt Date: 20240813
  Transmission Date: 20241016
  Serious: No
  Sender: LEO PHARM
  Company Number: US-LEO Pharma-371730

PATIENT
  Age: 76 Year
  Sex: Female

DRUGS (1)
  1. ADBRY [Suspect]
     Active Substance: TRALOKINUMAB-LDRM
     Indication: Eczema
     Dosage: EXPIRY DATE IS SEP-2025

REACTIONS (10)
  - Eyelid rash [Recovered/Resolved]
  - Eye irritation [Recovered/Resolved]
  - Cough [Not Recovered/Not Resolved]
  - COVID-19 [Recovered/Resolved]
  - Superficial injury of eye [Recovered/Resolved]
  - Eye pruritus [Recovered/Resolved]
  - Eye irritation [Unknown]
  - Blood glucose increased [Recovered/Resolved]
  - Ocular hyperaemia [Recovered/Resolved]
  - Dry eye [Recovered/Resolved]
